FAERS Safety Report 6216881-5 (Version None)
Quarter: 2009Q2

REPORT INFORMATION
  Report Type: 
  Country: None (occurrence: None)
  Receive Date: 20090605
  Receipt Date: 20090506
  Transmission Date: 20091009
  Serious: No
  Sender: FDA-Public Use
  Company Number: US-BAYER-200911435BCC

PATIENT
  Age: 37 Year
  Sex: Female
  Weight: 95 kg

DRUGS (2)
  1. ALEVE [Suspect]
     Indication: INFLUENZA LIKE ILLNESS
     Dosage: UNIT DOSE: 220 MG
     Route: 048
     Dates: start: 20090505, end: 20090505
  2. ALEVE [Suspect]
     Dosage: UNIT DOSE: 220 MG
     Route: 048
     Dates: start: 20090506

REACTIONS (1)
  - NAUSEA [None]
